FAERS Safety Report 22731761 (Version 2)
Quarter: 2024Q1

REPORT INFORMATION
  Report Type: Spontaneous
  Country: IT (occurrence: IT)
  Receive Date: 20230720
  Receipt Date: 20240301
  Transmission Date: 20240409
  Serious: Yes (Life-Threatening, Hospitalization, Disabling, Other)
  Sender: FDA-Public Use
  Company Number: None

PATIENT
  Age: 8 Year
  Sex: Male
  Weight: 26 kg

DRUGS (7)
  1. VORICONAZOLE [Suspect]
     Active Substance: VORICONAZOLE
     Indication: Pneumonia fungal
     Dosage: 210 MG, 2X/DAY
     Route: 042
     Dates: start: 20230601, end: 20230607
  2. VORICONAZOLE [Suspect]
     Active Substance: VORICONAZOLE
     Dosage: 135 MG, 2X/DAY
     Route: 042
     Dates: start: 20230608, end: 20230610
  3. VORICONAZOLE [Suspect]
     Active Substance: VORICONAZOLE
     Dosage: 120 MG, 2X/DAY
     Route: 042
     Dates: start: 20230614, end: 20230616
  4. VORICONAZOLE [Suspect]
     Active Substance: VORICONAZOLE
     Dosage: 100 MG, 2X/DAY
     Route: 042
     Dates: start: 20230617, end: 20230619
  5. SULFAMETHOXAZOLE\TRIMETHOPRIM [Concomitant]
     Active Substance: SULFAMETHOXAZOLE\TRIMETHOPRIM
     Indication: Antibiotic prophylaxis
     Dosage: THREE DAYS A WEEK
     Route: 042
     Dates: start: 20230612
  6. LEVETIRACETAM [Concomitant]
     Active Substance: LEVETIRACETAM
     Indication: Seizure
     Dosage: 135 MG, 2X/DAY
     Route: 042
     Dates: start: 20230605
  7. OMEPRAZOLE [Concomitant]
     Active Substance: OMEPRAZOLE
     Indication: Gastrointestinal disorder
     Dosage: 20 MG/DIE
     Route: 042
     Dates: start: 20230605

REACTIONS (5)
  - Toxic encephalopathy [Recovered/Resolved with Sequelae]
  - Wernicke^s encephalopathy [Recovered/Resolved with Sequelae]
  - Magnetic resonance imaging head abnormal [Unknown]
  - Drug level increased [Unknown]
  - Renal impairment [Recovered/Resolved]

NARRATIVE: CASE EVENT DATE: 20230606
